FAERS Safety Report 6742467-X (Version None)
Quarter: 2010Q2

REPORT INFORMATION
  Report Type: 
  Country: None (occurrence: None)
  Receive Date: 20100524
  Receipt Date: 20100512
  Transmission Date: 20101027
  Serious: Yes (Death, Hospitalization, Other)
  Sender: FDA-Public Use
  Company Number: TRP_06964_2010

PATIENT
  Age: 47 Year
  Sex: Male

DRUGS (11)
  1. INTERFERON ALFA [Suspect]
     Indication: ANTIVIRAL TREATMENT
     Dosage: (180 ?G SUBCUTANEOUS)
     Route: 058
  2. RIBAVIRIN [Suspect]
     Indication: ANTIVIRAL TREATMENT
     Dosage: (22 MG/KG QID,)
  3. MIDAZOLAM HCL [Suspect]
     Indication: SEDATION
     Dosage: (4 MG,)
  4. ROFERON-A [Suspect]
     Indication: ANTIVIRAL TREATMENT
     Dosage: (5000000 IU 1X/3 DAYS,)
  5. MYCOPHENOLATE MOFETIL [Suspect]
     Indication: PROPHYLAXIS AGAINST TRANSPLANT REJECTION
     Dosage: (2 G,)
  6. THYMOGLOBULIN [Suspect]
     Indication: PROPHYLAXIS AGAINST TRANSPLANT REJECTION
     Dosage: (2 G,)
  7. CICLOSPORIN (CYCLOSPORIN A) [Suspect]
     Indication: PROPHYLAXIS AGAINST TRANSPLANT REJECTION
     Dosage: (3.5 MG/KG,)
  8. PHENOBARBITAL TAB [Suspect]
     Indication: SEDATION
     Dosage: (8 MG,)
  9. AMANTADINE HCL [Suspect]
     Indication: ANTIVIRAL TREATMENT
     Dosage: (4 MG,)
  10. KETAMINE HCL [Suspect]
     Indication: SEDATION
     Dosage: (25 MG Q1H,)
  11. PREDNISOLONE [Suspect]
     Indication: PROPHYLAXIS AGAINST TRANSPLANT REJECTION
     Dosage: (20 MG,)

REACTIONS (14)
  - ARRHYTHMIA [None]
  - BRAIN DEATH [None]
  - BRAIN OEDEMA [None]
  - CARDIAC ARREST [None]
  - DIABETES INSIPIDUS [None]
  - HEPATIC ENZYME INCREASED [None]
  - HYDROPHOBIA [None]
  - HYPOTHERMIA [None]
  - OFF LABEL USE [None]
  - PANIC ATTACK [None]
  - PLEOCYTOSIS [None]
  - RESPIRATORY DISTRESS [None]
  - SALIVARY HYPERSECRETION [None]
  - SEDATION [None]
